FAERS Safety Report 5933664-1 (Version None)
Quarter: 2008Q4

REPORT INFORMATION
  Report Type: 
  Country: None (occurrence: None)
  Receive Date: 20081029
  Receipt Date: 20081023
  Transmission Date: 20090506
  Serious: Yes (Death, Other)
  Sender: FDA-Public Use
  Company Number: NO-BRISTOL-MYERS SQUIBB COMPANY-14383897

PATIENT
  Age: 68 Year
  Sex: Male

DRUGS (11)
  1. METFORMIN HCL [Suspect]
     Indication: TYPE 2 DIABETES MELLITUS
     Route: 048
     Dates: start: 20030101
  2. PRAVACHOL [Concomitant]
     Route: 048
  3. ZESTORETIC [Concomitant]
     Indication: HYPERTENSION
     Dosage: 1 DF = 1 TAB
     Route: 048
  4. SOMAC [Concomitant]
     Route: 048
  5. ZYLORIC [Concomitant]
     Route: 048
  6. CARDURA [Concomitant]
     Indication: HYPERTENSION
     Route: 048
  7. MINDIAB [Concomitant]
     Indication: TYPE 2 DIABETES MELLITUS
     Route: 048
  8. LASIX [Concomitant]
     Route: 048
  9. TENORMIN [Concomitant]
     Route: 048
  10. COLCHICINE [Concomitant]
     Route: 048
  11. MAREVAN [Concomitant]
     Indication: ATRIAL FIBRILLATION
     Route: 048

REACTIONS (6)
  - ANURIA [None]
  - DIARRHOEA [None]
  - HYPOGLYCAEMIA [None]
  - LACTIC ACIDOSIS [None]
  - RENAL FAILURE ACUTE [None]
  - VOMITING [None]
